FAERS Safety Report 7999332-X (Version None)
Quarter: 2011Q4

REPORT INFORMATION
  Report Type: 
  Country: None (occurrence: None)
  Receive Date: 20111221
  Receipt Date: 20111209
  Transmission Date: 20120403
  Serious: Yes (Death, Hospitalization, Other)
  Sender: FDA-Public Use
  Company Number: TW-PFIZER INC-2011300243

PATIENT
  Age: 57 Year
  Sex: Male
  Weight: 62 kg

DRUGS (34)
  1. AMOXICILLIN [Suspect]
     Indication: NASOPHARYNGITIS
     Dosage: 500 MG, SINGLE
     Route: 048
     Dates: start: 20111205, end: 20111205
  2. ESTAZOLAM [Concomitant]
     Dosage: UNK
     Dates: start: 20111121, end: 20111122
  3. DIFENIDOL [Concomitant]
     Indication: VERTIGO
     Dosage: UNK
     Dates: start: 20111115, end: 20111117
  4. MEGESTROL ACETATE [Concomitant]
     Indication: DECREASED APPETITE
     Dosage: UNK
     Dates: start: 20111116, end: 20111208
  5. FENTANYL CITRATE [Concomitant]
     Indication: PAIN
     Dosage: UNK
     Dates: start: 20111026, end: 20111115
  6. PARACETAMOL [Concomitant]
     Indication: PYREXIA
     Dosage: UNK
     Dates: start: 20111115, end: 20111115
  7. CEFAZOLIN [Concomitant]
     Indication: PYREXIA
     Dosage: UNK
     Dates: start: 20111115, end: 20111115
  8. SMECTITE [Concomitant]
     Indication: DIARRHOEA
     Dosage: UNK
     Dates: start: 20111118, end: 20111123
  9. ACETYLCYSTEINE [Concomitant]
     Indication: COUGH
     Dosage: UNK
     Dates: start: 20111119, end: 20111123
  10. PROCHLORPERAZINE [Concomitant]
     Indication: NAUSEA
     Dosage: UNK
     Dates: start: 20111119, end: 20111208
  11. LORAZEPAM [Concomitant]
     Indication: INSOMNIA
     Dosage: UNK
     Dates: start: 20111120, end: 20111120
  12. PROSULTIAMINE W/RIBOFLAVIN/ [Concomitant]
     Indication: URINARY RETENTION
     Dosage: UNK
     Dates: start: 20111207, end: 20111207
  13. ESTAZOLAM [Concomitant]
     Dosage: UNK
     Dates: start: 20111119, end: 20111119
  14. ALFUZOSIN [Concomitant]
     Indication: URINARY RETENTION
     Dosage: UNK
     Dates: start: 20111207, end: 20111207
  15. DEXTROMETHORPHAN [Concomitant]
     Indication: NASOPHARYNGITIS
     Dosage: UNK
     Dates: start: 20111205, end: 20111205
  16. CEPHALEXIN [Concomitant]
     Indication: PYREXIA
     Dosage: UNK
     Dates: start: 20111115, end: 20111115
  17. FAMOTIDINE [Concomitant]
     Indication: PROPHYLAXIS
     Dosage: UNK
     Dates: start: 20111115, end: 20111115
  18. MAGNESIUM OXIDE [Concomitant]
     Indication: CONSTIPATION
     Dosage: UNK
     Dates: start: 20111116, end: 20111117
  19. ZOLPIDEM [Concomitant]
     Indication: INSOMNIA
     Dosage: UNK
     Dates: start: 20111116, end: 20111118
  20. FEXOFENADINE [Concomitant]
     Indication: RASH
     Dosage: UNK
     Dates: start: 20111116, end: 20111117
  21. PHENAZOPYRIDINE HCL TAB [Suspect]
     Indication: URINARY RETENTION
     Dosage: SINGLE DOSE
     Route: 048
     Dates: start: 20111207, end: 20111207
  22. CLINDAMYCIN [Suspect]
     Indication: NASOPHARYNGITIS
     Dosage: 150 MG, SINGLE
     Route: 048
     Dates: start: 20111205, end: 20111205
  23. URECHOLINE [Concomitant]
     Indication: URINARY RETENTION
     Dosage: UNK
     Dates: start: 20111207, end: 20111207
  24. LYSOZYME [Concomitant]
     Indication: NASOPHARYNGITIS
     Dosage: UNK
     Dates: start: 20111205, end: 20111205
  25. DIFENIDOL [Concomitant]
     Dosage: UNK
     Dates: start: 20111123, end: 20111208
  26. ZOPICLONE [Concomitant]
     Indication: INSOMNIA
     Dosage: UNK
     Dates: start: 20111119, end: 20111120
  27. PEOLIN [Concomitant]
     Indication: DIARRHOEA
     Dosage: UNK
     Dates: start: 20111122, end: 20111208
  28. CRIZOTINIB [Suspect]
     Indication: NON-SMALL CELL LUNG CANCER
     Dosage: 250 MG TWICW DAILY
     Route: 048
     Dates: start: 20111103, end: 20111208
  29. MORPHINE SULFATE [Concomitant]
     Indication: PAIN
     Dosage: UNK
     Dates: start: 20110629, end: 20111115
  30. ESTAZOLAM [Concomitant]
     Indication: INSOMNIA
     Dosage: UNK
     Dates: start: 20111026, end: 20111115
  31. PIRACETAM [Concomitant]
     Indication: VERTIGO
     Dosage: UNK
     Dates: start: 20111115, end: 20111115
  32. ZOLPIDEM [Concomitant]
     Dosage: UNK
     Dates: start: 20111121, end: 20111207
  33. TAMSULOSIN [Concomitant]
     Indication: URINARY RETENTION
     Dosage: UNK
     Dates: start: 20111116, end: 20111208
  34. BUTYLSCOPOLAMINE [Concomitant]
     Indication: DIARRHOEA
     Dosage: UNK
     Dates: start: 20111119, end: 20111119

REACTIONS (1)
  - LIVER INJURY [None]
